FAERS Safety Report 5895336-1 (Version None)
Quarter: 2008Q3

REPORT INFORMATION
  Report Type: 
  Country: None (occurrence: None)
  Receive Date: 20080729
  Receipt Date: 20080729
  Transmission Date: 20090109
  Serious: No
  Sender: FDA-Public Use
  Company Number: None

PATIENT
  Age: 37 Year
  Sex: Male
  Weight: 71.6683 kg

DRUGS (1)
  1. PRO HEALTH MOUTHWAST CREST/PROCTOR AND GAMBLE [Suspect]
     Dosage: ONE CAPFUL TWICE DAULY DENTAL
     Route: 004
     Dates: start: 20080101, end: 20080728

REACTIONS (2)
  - GINGIVAL DISCOLOURATION [None]
  - TOOTH DISCOLOURATION [None]
